FAERS Safety Report 24758060 (Version 1)
Quarter: 2024Q4

REPORT INFORMATION
  Report Type: Spontaneous
  Country: ES (occurrence: US)
  Receive Date: 20241220
  Receipt Date: 20241220
  Transmission Date: 20250114
  Serious: No
  Sender: CIPLA
  Company Number: ES-CIPLA LTD.-2024US14713

PATIENT

DRUGS (1)
  1. LENALIDOMIDE [Suspect]
     Active Substance: LENALIDOMIDE
     Indication: Plasma cell myeloma
     Dosage: UNK, AT A DOSE OF 5 MG FREQUENCY 21 DAYS ON/7 DAYS OFF
     Route: 048
     Dates: start: 20241031, end: 20241121

REACTIONS (2)
  - Insomnia [Recovered/Resolved]
  - Dysgeusia [Recovered/Resolved]

NARRATIVE: CASE EVENT DATE: 20241031
